FAERS Safety Report 6170344-4 (Version None)
Quarter: 2009Q2

REPORT INFORMATION
  Report Type: 
  Country: None (occurrence: None)
  Receive Date: 20090428
  Receipt Date: 20090416
  Transmission Date: 20091009
  Serious: Yes (Other)
  Sender: FDA-Public Use
  Company Number: US-PFIZER INC-2009200635

PATIENT
  Sex: Female
  Weight: 88.889 kg

DRUGS (11)
  1. LYRICA [Suspect]
     Indication: TRIGEMINAL NEURALGIA
     Dates: start: 20090301, end: 20090416
  2. GABAPENTIN [Suspect]
     Indication: TRIGEMINAL NEURALGIA
     Dosage: UNK
     Dates: start: 20090101, end: 20090101
  3. DETROL [Concomitant]
     Dosage: UNK
  4. ALBUTEROL [Concomitant]
     Dosage: 17 MG, AS NEEDED
  5. AZMACORT [Concomitant]
     Dosage: 20 G, 2X/DAY
  6. LORATADINE [Concomitant]
     Dosage: 10 MG, 1X/DAY
  7. FLUTICASONE [Concomitant]
     Dosage: UNK
  8. ACETYLSALICYLIC ACID [Concomitant]
     Dosage: 81 MG, 1X/DAY
  9. TRAZODONE [Concomitant]
     Dosage: 50 MG, 1X/DAY
  10. LOVASTATIN [Concomitant]
     Dosage: 20 MG, 1X/DAY
  11. OMEPRAZOLE [Concomitant]
     Dosage: 20 MG, 1X/DAY

REACTIONS (6)
  - DIZZINESS [None]
  - DRUG INEFFECTIVE [None]
  - FEELING ABNORMAL [None]
  - MENTAL IMPAIRMENT [None]
  - TONGUE BLISTERING [None]
  - VAGINAL MUCOSAL BLISTERING [None]
